FAERS Safety Report 9205920 (Version 1)
Quarter: 2013Q1

REPORT INFORMATION
  Report Type: Spontaneous
  Country: US (occurrence: None)
  Receive Date: 20120709
  Receipt Date: 20120709
  Transmission Date: 20140127
  Serious: Yes (Other)
  Sender: FDA-Public Use
  Company Number: PHEH2011US011612

PATIENT
  Age: 41 Year
  Sex: Female
  Weight: 73.5 kg

DRUGS (8)
  1. GLEEVEC (IMATINIB) [Suspect]
     Indication: SOFT TISSUE NEOPLASM
     Route: 048
  2. BACLOFEN (BACLOFEN) [Concomitant]
  3. ALEVE (NAPORXEN SODIUM) [Concomitant]
  4. ADVIL (IBUPROFEN) [Concomitant]
  5. OMEPRAZOLE (OMEPRAZOLE) [Concomitant]
  6. LISINOPRIL (LISINOPRIL) [Concomitant]
  7. CELEBREX (CELECOXIB) [Concomitant]
  8. FLORICET (FLORICET) [Concomitant]

REACTIONS (4)
  - Anaemia [None]
  - Fluid retention [None]
  - Nausea [None]
  - Muscle spasms [None]
